FAERS Safety Report 19543273 (Version 3)
Quarter: 2021Q3

REPORT INFORMATION
  Report Type: Spontaneous
  Country: JP (occurrence: JP)
  Receive Date: 20210713
  Receipt Date: 20210929
  Transmission Date: 20211014
  Serious: Yes (Other)
  Sender: FDA-Public Use
  Company Number: JP-ASTRAZENECA-2021A525059

PATIENT
  Age: 83 Year
  Sex: Female
  Weight: 50 kg

DRUGS (13)
  1. TAGRISSO [Suspect]
     Active Substance: OSIMERTINIB
     Indication: NON-SMALL CELL LUNG CANCER
     Route: 048
     Dates: start: 20210513
  2. SALEX [Concomitant]
     Active Substance: SALICYLIC ACID
     Dosage: DOSE UNKNOWN
     Route: 065
  3. FELBINAC [Concomitant]
     Active Substance: FELBINAC
     Dosage: DOSE UNKNOWN
     Route: 065
  4. METHYCOBAL [Suspect]
     Active Substance: METHYLCOBALAMIN
     Indication: TASTE DISORDER
     Dosage: AFTER EACH MEALS
     Route: 048
     Dates: start: 20210525
  5. HOCHUEKKITO [Suspect]
     Active Substance: HERBALS
     Route: 048
  6. MIKELUNA [Concomitant]
     Active Substance: CARTEOLOL HYDROCHLORIDE\LATANOPROST
     Dosage: DOSE UNKNOWN
     Route: 065
  7. PIRENOXINE [Concomitant]
     Active Substance: PIRENOXINE
     Dosage: DOSE UNKNOWN
     Route: 065
  8. PROMAC [Suspect]
     Active Substance: NITROFURANTOIN
     Indication: TASTE DISORDER
     Route: 048
     Dates: start: 20210525
  9. AMLODIPINE [Concomitant]
     Active Substance: AMLODIPINE BESYLATE
     Dosage: DOSE UNKNOWN
     Route: 065
  10. TIZANIDINE. [Concomitant]
     Active Substance: TIZANIDINE
     Dosage: DOSE UNKNOWN
     Route: 065
  11. ALESION [Concomitant]
     Active Substance: EPINASTINE HYDROCHLORIDE
     Dosage: DOSE UNKNOWN
     Route: 065
  12. TOKISHAKUYAKUSAN [Concomitant]
     Active Substance: HERBALS
     Dosage: DOSE UNKNOWN
     Route: 065
  13. FML [Concomitant]
     Active Substance: FLUOROMETHOLONE
     Dosage: DOSE UNKNOWN
     Route: 065

REACTIONS (5)
  - Decreased appetite [Not Recovered/Not Resolved]
  - Taste disorder [Recovered/Resolved]
  - Myelosuppression [Unknown]
  - Paronychia [Not Recovered/Not Resolved]
  - Skin fissures [Not Recovered/Not Resolved]

NARRATIVE: CASE EVENT DATE: 20210517
